FAERS Safety Report 24215365 (Version 1)
Quarter: 2024Q3

REPORT INFORMATION
  Report Type: Report from Study
  Country: US (occurrence: US)
  Receive Date: 20240816
  Receipt Date: 20240816
  Transmission Date: 20241017
  Serious: Yes (Other)
  Sender: ABBVIE
  Company Number: US-ABBVIE-5683736

PATIENT
  Age: 57 Year
  Sex: Male

DRUGS (1)
  1. SKYRIZI [Suspect]
     Active Substance: RISANKIZUMAB-RZAA
     Indication: Product used for unknown indication
     Route: 058
     Dates: start: 20230726

REACTIONS (4)
  - Sinus polyp [Recovered/Resolved]
  - Sinusitis [Recovered/Resolved]
  - Asthma [Unknown]
  - Deafness [Unknown]

NARRATIVE: CASE EVENT DATE: 20240201
